FAERS Safety Report 11176765 (Version 1)
Quarter: 2015Q2

REPORT INFORMATION
  Report Type: Spontaneous
  Country: US (occurrence: None)
  Receive Date: 20150512
  Receipt Date: 20150512
  Transmission Date: 20150821
  Serious: No
  Sender: FDA-Public Use
  Company Number: US-I00037

PATIENT
  Age: 69 Year
  Sex: Male

DRUGS (6)
  1. ALBENDAZOLE [Suspect]
     Active Substance: ALBENDAZOLE
     Indication: BALAMUTHIA INFECTION
     Route: 048
  2. SULFADIAZINE. [Suspect]
     Active Substance: SULFADIAZINE
     Indication: BALAMUTHIA INFECTION
     Route: 048
  3. PENTAMIDINE [Suspect]
     Active Substance: PENTAMIDINE
     Indication: BALAMUTHIA INFECTION
     Route: 042
  4. FLUCONAZOLE. [Suspect]
     Active Substance: FLUCONAZOLE
     Indication: BALAMUTHIA INFECTION
     Route: 048
  5. AZITHROMYCIN [Suspect]
     Active Substance: AZITHROMYCIN ANHYDROUS
     Indication: BALAMUTHIA INFECTION
  6. MILTEFOSINE [Suspect]
     Active Substance: MILTEFOSINE
     Indication: BALAMUTHIA INFECTION

REACTIONS (3)
  - Off label use [None]
  - Transaminases increased [None]
  - Diarrhoea [None]

NARRATIVE: CASE EVENT DATE: 201406
